FAERS Safety Report 11231260 (Version 2)
Quarter: 2015Q3

REPORT INFORMATION
  Report Type: Spontaneous
  Country: UA (occurrence: UA)
  Receive Date: 20150701
  Receipt Date: 20150713
  Transmission Date: 20151125
  Serious: Yes (Death, Life-Threatening, Hospitalization, Other)
  Sender: FDA-Public Use
  Company Number: UA-ASTRAZENECA-2015SE61994

PATIENT
  Age: 66 Year
  Sex: Male

DRUGS (3)
  1. CRESTOR [Concomitant]
     Active Substance: ROSUVASTATIN CALCIUM
     Dates: start: 201411
  2. BRILINTA [Suspect]
     Active Substance: TICAGRELOR
     Indication: ACUTE CORONARY SYNDROME
     Route: 048
     Dates: start: 201411
  3. ASPIRIN CARDIO [Concomitant]
     Active Substance: ASPIRIN
     Dates: start: 201411

REACTIONS (7)
  - Anaemia [Fatal]
  - Oedema [Unknown]
  - Abdominal pain [Unknown]
  - Disseminated intravascular coagulation [Unknown]
  - Sinus tachycardia [Unknown]
  - Contusion [Unknown]
  - Epistaxis [Unknown]

NARRATIVE: CASE EVENT DATE: 201505
